FAERS Safety Report 12286008 (Version 1)
Quarter: 2016Q2

REPORT INFORMATION
  Report Type: Report from Study
  Country: CO (occurrence: CO)
  Receive Date: 20160420
  Receipt Date: 20160420
  Transmission Date: 20160815
  Serious: Yes (Hospitalization)
  Sender: FDA-Public Use
  Company Number: CO-JNJFOC-20160412832

PATIENT
  Age: 82 Year
  Sex: Male
  Weight: 73 kg

DRUGS (3)
  1. ENOXAPARIN [Concomitant]
     Active Substance: ENOXAPARIN
     Dosage: FOR 10 DAYS.
     Route: 065
  2. ZYTIGA [Suspect]
     Active Substance: ABIRATERONE ACETATE
     Indication: PROSTATE CANCER
     Route: 048
     Dates: start: 20150409
  3. ENOXAPARIN [Concomitant]
     Active Substance: ENOXAPARIN
     Dosage: FOR 10 DAYS.
     Route: 065

REACTIONS (7)
  - Coagulation time prolonged [Not Recovered/Not Resolved]
  - Ecchymosis [Not Recovered/Not Resolved]
  - Peripheral swelling [Not Recovered/Not Resolved]
  - Fall [Not Recovered/Not Resolved]
  - Cerebral infarction [Not Recovered/Not Resolved]
  - Pain in extremity [Not Recovered/Not Resolved]
  - Nosocomial infection [Not Recovered/Not Resolved]

NARRATIVE: CASE EVENT DATE: 20160324
